FAERS Safety Report 21485711 (Version 1)
Quarter: 2022Q4

REPORT INFORMATION
  Report Type: Spontaneous
  Country: US (occurrence: US)
  Receive Date: 20221020
  Receipt Date: 20221020
  Transmission Date: 20230112
  Serious: No
  Sender: FDA-Public Use
  Company Number: US-BRISTOL-MYERS SQUIBB COMPANY-2022-037824

PATIENT
  Age: 63 Year
  Sex: Male

DRUGS (1)
  1. POMALIDOMIDE [Suspect]
     Active Substance: POMALIDOMIDE
     Indication: Plasma cell myeloma
     Dosage: TAKE 1 CAPSULE BY MOUTH DAILY ON DAYS 1-21 OF 28 DAYS(1WEEK OFF).
     Route: 048
     Dates: start: 20220420

REACTIONS (4)
  - Depression [Unknown]
  - Pruritus [Unknown]
  - Crying [Unknown]
  - Adjustment disorder with depressed mood [Unknown]
